FAERS Safety Report 14009764 (Version 1)
Quarter: 2017Q3

REPORT INFORMATION
  Report Type: Report from Study
  Country: IN (occurrence: IN)
  Receive Date: 20170925
  Receipt Date: 20170925
  Transmission Date: 20171128
  Serious: Yes (Hospitalization, Other)
  Sender: FDA-Public Use
  Company Number: PHHY2017IN139480

PATIENT
  Age: 67 Year
  Sex: Female
  Weight: 60 kg

DRUGS (2)
  1. ACLASTA [Suspect]
     Active Substance: ZOLEDRONIC ACID
     Indication: OSTEOPOROSIS
     Dosage: 5 MG, 4 YEARS BEFORE
     Route: 042
  2. RESTORIL [Concomitant]
     Active Substance: TEMAZEPAM
     Indication: HYPOVITAMINOSIS
     Route: 048

REACTIONS (9)
  - Fatigue [Not Recovered/Not Resolved]
  - Diabetes mellitus [Not Recovered/Not Resolved]
  - Oedema peripheral [Not Recovered/Not Resolved]
  - Pain in extremity [Recovering/Resolving]
  - Laziness [Not Recovered/Not Resolved]
  - Blood glucose increased [Unknown]
  - Hand fracture [Recovered/Resolved]
  - Chikungunya virus infection [Recovered/Resolved]
  - Bone density decreased [Not Recovered/Not Resolved]

NARRATIVE: CASE EVENT DATE: 20170829
